FAERS Safety Report 7660508-2 (Version None)
Quarter: 2011Q3

REPORT INFORMATION
  Report Type: 
  Country: None (occurrence: None)
  Receive Date: 20110805
  Receipt Date: 20110731
  Transmission Date: 20111222
  Serious: Yes (Disabling)
  Sender: FDA-Public Use
  Company Number: US-MERCK-1108USA00186

PATIENT
  Age: 43 Year
  Sex: Female

DRUGS (8)
  1. MAXALT [Suspect]
     Route: 048
  2. MAXALT [Suspect]
     Indication: MIGRAINE
     Route: 048
  3. VITAMINS (UNSPECIFIED) [Concomitant]
     Route: 065
  4. EXCEDRIN (MIGRAINE) [Concomitant]
     Route: 065
  5. ASCORBIC ACID [Concomitant]
     Route: 065
  6. LOESTRIN 1.5/30 [Concomitant]
     Route: 065
  7. CALCIUM (UNSPECIFIED) AND VITAMIN D (UNSPECIFIED) [Concomitant]
     Route: 065
  8. ESTROGENS (UNSPECIFIED) [Concomitant]
     Route: 065

REACTIONS (7)
  - FEELING ABNORMAL [None]
  - FATIGUE [None]
  - SLUGGISHNESS [None]
  - MIGRAINE [None]
  - SINUS DISORDER [None]
  - HEAD DISCOMFORT [None]
  - LACRIMATION INCREASED [None]
